FAERS Safety Report 4598436-1 (Version None)
Quarter: 2005Q1

REPORT INFORMATION
  Report Type: 
  Country: None (occurrence: None)
  Receive Date: 20050304
  Receipt Date: 20050222
  Transmission Date: 20050727
  Serious: Yes (Hospitalization)
  Sender: FDA-Public Use
  Company Number: FR-ABBOTT-05P-056-0291725-00

PATIENT
  Age: 46 Year
  Sex: Female

DRUGS (8)
  1. DEPAKENE [Suspect]
     Indication: EPILEPSY
     Route: 048
  2. DEPAKENE [Suspect]
  3. FUROSEMIDE [Suspect]
     Indication: DRUG USE FOR UNKNOWN INDICATION
     Dosage: 20 MG TABLET
     Route: 048
     Dates: end: 20050101
  4. FUROSEMIDE [Suspect]
  5. CLAVULIN [Suspect]
     Indication: URINARY TRACT INFECTION
     Route: 042
     Dates: start: 20041228, end: 20050101
  6. CLAVULIN [Suspect]
     Indication: LUNG DISORDER
     Route: 042
     Dates: start: 20050104, end: 20050110
  7. ALEPSAL [Suspect]
     Indication: DRUG USE FOR UNKNOWN INDICATION
     Dosage: 100 MG TABLET
     Route: 048
  8. ISOTRETINOIN [Suspect]
     Indication: DRUG USE FOR UNKNOWN INDICATION
     Route: 048

REACTIONS (7)
  - LUNG DISORDER [None]
  - PANCYTOPENIA [None]
  - PROTHROMBIN TIME RATIO DECREASED [None]
  - RECTAL HAEMORRHAGE [None]
  - RECTAL ULCER [None]
  - SHOCK [None]
  - URINARY TRACT INFECTION [None]
